FAERS Safety Report 8479819-6 (Version None)
Quarter: 2012Q2

REPORT INFORMATION
  Report Type: 
  Country: None (occurrence: None)
  Receive Date: 20120629
  Receipt Date: 20120619
  Transmission Date: 20120825
  Serious: Yes (Hospitalization, Disabling, Other)
  Sender: FDA-Public Use
  Company Number: US-ELI_LILLY_AND_COMPANY-US201206007018

PATIENT
  Sex: Male

DRUGS (3)
  1. LOVAZA [Concomitant]
  2. ASPIRIN [Concomitant]
     Dosage: 81 MG, UNKNOWN
  3. HUMALOG [Suspect]
     Indication: DIABETES MELLITUS
     Dosage: UNK, PRN

REACTIONS (9)
  - INCORRECT DOSE ADMINISTERED [None]
  - HERNIA [None]
  - BLOOD GLUCOSE INCREASED [None]
  - BLINDNESS [None]
  - VITREOUS FLOATERS [None]
  - OSTEOARTHRITIS [None]
  - GAIT DISTURBANCE [None]
  - VISION BLURRED [None]
  - MUSCULOSKELETAL PAIN [None]
